FAERS Safety Report 22180084 (Version 2)
Quarter: 2023Q2

REPORT INFORMATION
  Report Type: Report from Study
  Country: FR (occurrence: FR)
  Receive Date: 20230406
  Receipt Date: 20230418
  Transmission Date: 20230721
  Serious: Yes (Other)
  Sender: FDA-Public Use
  Company Number: FR-002147023-NVSC2023FR076119

PATIENT
  Age: 66 Year
  Sex: Female
  Weight: 55 kg

DRUGS (7)
  1. LUTATHERA [Suspect]
     Active Substance: LUTETIUM OXODOTREOTIDE LU-177
     Indication: Glioblastoma
     Dosage: 150 MCI, Q4W
     Route: 042
     Dates: start: 20221020, end: 20230207
  2. DOTATATE GALLIUM GA-68 [Suspect]
     Active Substance: DOTATATE GALLIUM GA-68
     Indication: Glioblastoma
     Dosage: 3.4 MCI, ONCE/SINGLE
     Route: 042
     Dates: start: 20221011
  3. TEMOZOLOMIDE [Suspect]
     Active Substance: TEMOZOLOMIDE
     Indication: Product used for unknown indication
     Dosage: 120 MG
     Route: 048
     Dates: start: 20221027
  4. LEVETIRACETAM [Concomitant]
     Active Substance: LEVETIRACETAM
     Indication: Prophylaxis
     Dosage: UNK
     Route: 065
     Dates: start: 20221015
  5. BACTRIM [Concomitant]
     Active Substance: SULFAMETHOXAZOLE\TRIMETHOPRIM
     Indication: Infection prophylaxis
     Dosage: UNK
     Route: 065
     Dates: start: 20221027, end: 20230227
  6. TITANOREINE [Concomitant]
     Active Substance: CARRAGEENAN\TITANIUM\ZINC
     Indication: Haemorrhoids
     Dosage: UNK
     Route: 065
     Dates: start: 20230105
  7. PEGFILGRASTIM [Concomitant]
     Active Substance: PEGFILGRASTIM
     Indication: Prophylaxis
     Dosage: UNK
     Route: 065
     Dates: start: 20230208, end: 20230208

REACTIONS (4)
  - Neutrophil count decreased [Recovered/Resolved]
  - Neutrophil count decreased [Not Recovered/Not Resolved]
  - Platelet count decreased [Recovered/Resolved with Sequelae]
  - Platelet count decreased [Not Recovered/Not Resolved]

NARRATIVE: CASE EVENT DATE: 20230223
